FAERS Safety Report 16665203 (Version 1)
Quarter: 2019Q3

REPORT INFORMATION
  Report Type: Spontaneous
  Country: GB (occurrence: GB)
  Receive Date: 20190803
  Receipt Date: 20190803
  Transmission Date: 20191004
  Serious: Yes (Hospitalization)
  Sender: FDA-Public Use
  Company Number: GB-JNJFOC-20190737531

PATIENT
  Age: 33 Year
  Sex: Female
  Weight: 66 kg

DRUGS (23)
  1. MULTIVITAMINS                      /00116001/ [Suspect]
     Active Substance: VITAMINS
     Indication: PANCREATIC FAILURE
     Dosage: TABLETS/CAPSULES - 1 TABLET EACH MORNING 28 DAYS
     Route: 048
  2. COLECALCIFEROL [Suspect]
     Active Substance: CHOLECALCIFEROL
     Indication: PANCREATIC FAILURE
     Dosage: CAPSULES/TABLETS, 800 UNIT EACH MORNING 28 DAYS
     Route: 048
  3. ALFA-TOCOPHERYL ACETATE [Suspect]
     Active Substance: .ALPHA.-TOCOPHEROL ACETATE
     Indication: PANCREATIC FAILURE
     Dosage: EVERY MORNING AT 6 A.M
     Route: 048
  4. DORNASE ALFA. [Suspect]
     Active Substance: DORNASE ALFA
     Indication: PRODUCT USED FOR UNKNOWN INDICATION
     Dosage: 2.5 MG EACH MORNING 2 DAYS, MUCOLYTIC
     Route: 065
  5. PARACETAMOL [Suspect]
     Active Substance: ACETAMINOPHEN
     Indication: PYREXIA
  6. CREON [Suspect]
     Active Substance: PANCRELIPASE AMYLASE\PANCRELIPASE LIPASE\PANCRELIPASE PROTEASE
     Indication: PANCREATIC FAILURE
     Dosage: 5 CAPSULE THREE TIMES A DAY WITH FOOD 07:00, 12:00, 17:00
     Route: 048
  7. VITAMIN A + D                      /00343801/ [Suspect]
     Active Substance: ERGOCALCIFEROL\RETINOL
     Indication: PANCREATIC FAILURE
     Dosage: 2 CAPSULES EVERY MORNING AT 6 A.M.
     Route: 048
  8. SODIUM CHLORIDE. [Suspect]
     Active Substance: SODIUM CHLORIDE
     Indication: HYPONATRAEMIA
     Dosage: 1800 MG THREE TIMES A DAY
     Route: 048
  9. PARACETAMOL [Suspect]
     Active Substance: ACETAMINOPHEN
     Indication: PAIN
     Dosage: MAX 4G DAILY 1000 MG FOUR TIMES A DAY PRN 7 DAYS
     Route: 048
  10. CICLESONIDE [Suspect]
     Active Substance: CICLESONIDE
     Indication: ASTHMA
     Dosage: 160 MICROGRAM EACH MORNING
     Route: 065
  11. SODIUM CHLORIDE. [Suspect]
     Active Substance: SODIUM CHLORIDE
     Indication: PRODUCT USED FOR UNKNOWN INDICATION
     Dosage: 4 ML EVERY MORNING AT 6 A.M., MUCOLYTIC
     Route: 065
  12. FLUTICASONE FUROATE [Suspect]
     Active Substance: FLUTICASONE FUROATE
     Indication: RHINITIS
     Dosage: 27.5 MICROGRAM EACH MORNING
     Route: 065
  13. CARBOCISTEINE [Suspect]
     Active Substance: CARBOCYSTEINE
     Indication: PRODUCT USED FOR UNKNOWN INDICATION
     Dosage: 750 MG THREE TIMES A DAY, MUCOLYTIC
     Route: 048
  14. COLOBREATHE [Suspect]
     Active Substance: COLISTIMETHATE SODIUM
     Indication: PSEUDOMONAS INFECTION
     Dosage: 1,662,500 IU; TWICE DAILY
     Route: 055
     Dates: start: 20140523, end: 20190226
  15. ZOPICLONE [Suspect]
     Active Substance: ZOPICLONE
     Indication: INSOMNIA
     Dosage: EACH NIGHT 28 DAYS
     Route: 048
  16. SYMBICORT [Suspect]
     Active Substance: BUDESONIDE\FORMOTEROL FUMARATE DIHYDRATE
     Indication: ASTHMA
     Dosage: BUDESONIDE 200MCG, FORMETROL6MCG, 2 PUFF(S) TWICE DAILY MORNING
     Route: 065
  17. MACROGOL [Suspect]
     Active Substance: POLYETHYLENE GLYCOLS
     Indication: DISTAL INTESTINAL OBSTRUCTION SYNDROME
     Dosage: 1SACHET TWICE DAILY AT 10 AM AND 10PM 10 DAYS
     Route: 048
  18. MONTELUKAST [Suspect]
     Active Substance: MONTELUKAST SODIUM
     Indication: ASTHMA
     Dosage: EACH NIGHT 28 DAYS
     Route: 048
  19. DOCUSATE SODIUM. [Suspect]
     Active Substance: DOCUSATE SODIUM
     Indication: CONSTIPATION
     Dosage: DAILY
     Route: 048
  20. OMEPRAZOLE. [Suspect]
     Active Substance: OMEPRAZOLE
     Indication: GASTROOESOPHAGEAL REFLUX DISEASE
     Route: 048
  21. SALBUTAMOL [Suspect]
     Active Substance: ALBUTEROL
     Indication: PRODUCT USED FOR UNKNOWN INDICATION
     Dosage: 2 PUFF(S) PRN 28 DAYS
     Route: 065
  22. AZITHROMYCIN ANHYDROUS. [Suspect]
     Active Substance: AZITHROMYCIN ANHYDROUS
     Indication: PSEUDOMONAS INFECTION
     Dosage: EACH MORNING 28 DAYS
     Route: 048
  23. COLOBREATHE [Suspect]
     Active Substance: COLISTIMETHATE SODIUM
     Indication: CYSTIC FIBROSIS

REACTIONS (9)
  - Influenza [Recovered/Resolved]
  - Decreased appetite [Recovered/Resolved]
  - Condition aggravated [Recovered/Resolved]
  - Nasopharyngitis [Recovered/Resolved]
  - Hypersomnia [Recovered/Resolved]
  - Cough [Recovered/Resolved]
  - Chest discomfort [Recovered/Resolved]
  - Dry throat [Recovered/Resolved]
  - Bone pain [Recovered/Resolved]

NARRATIVE: CASE EVENT DATE: 20190222
